FAERS Safety Report 19747794 (Version 2)
Quarter: 2021Q3

REPORT INFORMATION
  Report Type: Spontaneous
  Country: US (occurrence: US)
  Receive Date: 20210826
  Receipt Date: 20210902
  Transmission Date: 20211014
  Serious: No
  Sender: FDA-Public Use
  Company Number: NVSC2021US192821

PATIENT
  Sex: Male

DRUGS (2)
  1. DUREZOL [Suspect]
     Active Substance: DIFLUPREDNATE
     Indication: MACULAR DEGENERATION
     Dosage: UNK
     Route: 065
  2. PATADAY [Suspect]
     Active Substance: OLOPATADINE HYDROCHLORIDE
     Indication: MACULAR DEGENERATION
     Dosage: UNK
     Route: 065

REACTIONS (1)
  - Visual impairment [Not Recovered/Not Resolved]
